FAERS Safety Report 7268603-7 (Version None)
Quarter: 2011Q1

REPORT INFORMATION
  Report Type: 
  Country: None (occurrence: None)
  Receive Date: 20110124
  Receipt Date: 20101221
  Transmission Date: 20110831
  Serious: Yes (Other)
  Sender: FDA-Public Use
  Company Number: JPI-P-013508

PATIENT
  Age: 39 Year
  Sex: Female
  Weight: 63.5036 kg

DRUGS (3)
  1. XYREM [Suspect]
     Indication: CATAPLEXY
     Dosage: ORAL, 6 GM (3 GM, 2 IN 1 D), ORAL
     Route: 048
     Dates: start: 20100910
  2. XYREM [Suspect]
     Indication: CATAPLEXY
     Dosage: ORAL, 6 GM (3 GM, 2 IN 1 D), ORAL
     Route: 048
     Dates: start: 20100101
  3. UNSPECIFIED CONCOMITANT MEDICATIONS [Concomitant]

REACTIONS (7)
  - CHEST PAIN [None]
  - COUGH [None]
  - DEHYDRATION [None]
  - STRESS [None]
  - INFLUENZA [None]
  - NASOPHARYNGITIS [None]
  - NAUSEA [None]
